FAERS Safety Report 11230659 (Version 3)
Quarter: 2015Q3

REPORT INFORMATION
  Report Type: Spontaneous
  Country: US (occurrence: US)
  Receive Date: 20150701
  Receipt Date: 20150929
  Transmission Date: 20151125
  Serious: Yes (Other)
  Sender: FDA-Public Use
  Company Number: US-PFIZER INC-2015217585

PATIENT
  Age: 24 Year
  Sex: Male

DRUGS (4)
  1. SURFAK [Concomitant]
     Dosage: 240 MG, DAILY
     Route: 048
     Dates: start: 20150607
  2. CHANTIX [Suspect]
     Active Substance: VARENICLINE TARTRATE
     Indication: SMOKING CESSATION THERAPY
     Dosage: 0.5 MG, 1X/DAY
     Route: 048
     Dates: start: 20150424, end: 20150425
  3. CHANTIX [Suspect]
     Active Substance: VARENICLINE TARTRATE
     Indication: TOBACCO ABUSE
     Dosage: 1 MG, 1X/DAY
     Dates: start: 20150426, end: 2015
  4. KLONOPIN [Concomitant]
     Active Substance: CLONAZEPAM
     Indication: ANXIETY
     Dosage: 0.5 MG, 1X/DAY AS NEEDED
     Dates: start: 20150609

REACTIONS (5)
  - Suicide attempt [Recovered/Resolved]
  - Amnesia [Not Recovered/Not Resolved]
  - Drug hypersensitivity [Unknown]
  - Appendicitis [Unknown]
  - Muscle spasms [Not Recovered/Not Resolved]

NARRATIVE: CASE EVENT DATE: 20150428
